FAERS Safety Report 5705820-9 (Version None)
Quarter: 2008Q2

REPORT INFORMATION
  Report Type: 
  Country: None (occurrence: None)
  Receive Date: 20080411
  Receipt Date: 20080402
  Transmission Date: 20081010
  Serious: Yes (Hospitalization)
  Sender: FDA-Public Use
  Company Number: 2008SP004879

PATIENT
  Age: 82 Year
  Sex: Male

DRUGS (8)
  1. TEMODAR [Suspect]
     Indication: ACUTE MYELOID LEUKAEMIA
     Dosage: 200 MG; QD;, 200 MG; QD;, 200 MG; QD;, 400 MG; QD
     Dates: start: 20080227, end: 20080304
  2. TEMODAR [Suspect]
     Indication: ACUTE MYELOID LEUKAEMIA
     Dosage: 200 MG; QD;, 200 MG; QD;, 200 MG; QD;, 400 MG; QD
     Dates: start: 20080310, end: 20080312
  3. TEMODAR [Suspect]
     Indication: ACUTE MYELOID LEUKAEMIA
     Dosage: 200 MG; QD;, 200 MG; QD;, 200 MG; QD;, 400 MG; QD
     Dates: start: 20080317, end: 20080323
  4. TEMODAR [Suspect]
     Indication: ACUTE MYELOID LEUKAEMIA
     Dosage: 200 MG; QD;, 200 MG; QD;, 200 MG; QD;, 400 MG; QD
     Dates: start: 20080305
  5. FLOMAX [Concomitant]
  6. COUMADIN [Concomitant]
  7. SENNA [Concomitant]
  8. COLACE [Concomitant]

REACTIONS (4)
  - FEBRILE NEUTROPENIA [None]
  - PANCYTOPENIA [None]
  - SYNCOPE [None]
  - URINARY TRACT INFECTION [None]
